FAERS Safety Report 12127607 (Version 2)
Quarter: 2016Q1

REPORT INFORMATION
  Report Type: Spontaneous
  Country: US (occurrence: US)
  Receive Date: 20160229
  Receipt Date: 20160316
  Transmission Date: 20160526
  Serious: Yes (Hospitalization, Other)
  Sender: FDA-Public Use
  Company Number: US-BAYER-2016-035333

PATIENT
  Age: 72 Year
  Sex: Male
  Weight: 86.62 kg

DRUGS (9)
  1. BAYER LOW DOSE [Suspect]
     Active Substance: ASPIRIN
     Indication: CORONARY ARTERY DISEASE
     Dosage: 1 DF, QD
     Route: 048
     Dates: start: 20131204, end: 20151130
  2. ESOMEPRAZOLE [Concomitant]
     Active Substance: ESOMEPRAZOLE
     Indication: GASTROOESOPHAGEAL REFLUX DISEASE
     Dosage: 20 MG, QD
     Route: 048
     Dates: start: 20140619
  3. COUMADIN [Interacting]
     Active Substance: WARFARIN SODIUM
     Indication: ATRIAL FIBRILLATION
     Dosage: 2.5 MG, QD EXCEPT THURSDAY
     Route: 048
     Dates: start: 20140331, end: 20151130
  4. SOTALOL. [Concomitant]
     Active Substance: SOTALOL
     Indication: ATRIAL FIBRILLATION
     Dosage: 120 MG, BID
     Route: 048
     Dates: start: 20140321
  5. DOCUSATE SODIUM. [Concomitant]
     Active Substance: DOCUSATE SODIUM
     Indication: CONSTIPATION
     Dosage: 100 MG, QD
     Route: 048
     Dates: start: 20120531
  6. BAYER LOW DOSE [Interacting]
     Active Substance: ASPIRIN
     Indication: CARDIOVASCULAR DISORDER
  7. LEVOTHYROXINE. [Concomitant]
     Active Substance: LEVOTHYROXINE
     Indication: THYROID DISORDER
     Dosage: 12.5 MG, ONCE EVERY AM AND TWICE EVERY PM
     Route: 048
     Dates: start: 20131204
  8. FISH OIL [Concomitant]
     Active Substance: FISH OIL
     Indication: HYPERLIPIDAEMIA
     Dosage: 1200 MG, QD
     Route: 048
     Dates: start: 20120220
  9. FENOFIBRATE. [Concomitant]
     Active Substance: FENOFIBRATE
     Indication: HYPERLIPIDAEMIA
     Dosage: 160 MG, QD
     Route: 048
     Dates: start: 20131223

REACTIONS (11)
  - Haematochezia [None]
  - White blood cell count increased [None]
  - Labelled drug-drug interaction medication error [None]
  - Haemorrhoids [None]
  - Adenoma benign [None]
  - Asthenia [None]
  - Blood urine present [None]
  - Diarrhoea [None]
  - Product use issue [None]
  - Gastrointestinal haemorrhage [Recovered/Resolved]
  - Polyp [None]

NARRATIVE: CASE EVENT DATE: 20131204
